FAERS Safety Report 11492016 (Version 1)
Quarter: 2015Q3

REPORT INFORMATION
  Report Type: Report from Study
  Country: BR (occurrence: BR)
  Receive Date: 20150910
  Receipt Date: 20150910
  Transmission Date: 20151125
  Serious: Yes (Hospitalization)
  Sender: FDA-Public Use
  Company Number: BR-ABBVIE-15K-020-1457595-00

PATIENT
  Age: 81 Year
  Sex: Male
  Weight: 70 kg

DRUGS (7)
  1. FOLIC ACID. [Concomitant]
     Active Substance: FOLIC ACID
     Indication: PRODUCT USED FOR UNKNOWN INDICATION
     Route: 048
     Dates: start: 2012
  2. METHOTREXATE [Concomitant]
     Active Substance: METHOTREXATE
     Indication: RHEUMATOID ARTHRITIS
     Route: 048
     Dates: start: 2012
  3. HUMIRA [Suspect]
     Active Substance: ADALIMUMAB
     Indication: RHEUMATOID ARTHRITIS
     Route: 058
     Dates: start: 20121115, end: 2013
  4. HUMIRA [Suspect]
     Active Substance: ADALIMUMAB
     Route: 058
     Dates: start: 2013
  5. CALCIUM CARBONATE W/COLECALCIFEROL [Concomitant]
     Active Substance: CALCIUM CARBONATE\CHOLECALCIFEROL
     Indication: OSTEOPOROSIS
     Dosage: 600+ 400IU
     Route: 048
     Dates: start: 2012
  6. SODIUM ALENDRONATE [Concomitant]
     Indication: OSTEOPOROSIS
     Route: 048
     Dates: start: 2012
  7. VITAMIN B COMPLEX [Concomitant]
     Active Substance: CYANOCOBALAMIN\DEXPANTHENOL\NIACINAMIDE\PYRIDOXINE HYDROCHLORIDE\RIBOFLAVIN 5^-PHOSPHATE SODIUM\THIAMINE HYDROCHLORIDE\VITAMIN B COMPLEX
     Indication: PRODUCT USED FOR UNKNOWN INDICATION
     Route: 048
     Dates: start: 2012

REACTIONS (10)
  - Asthenia [Recovering/Resolving]
  - Decreased appetite [Recovering/Resolving]
  - Infection [Recovering/Resolving]
  - Renal disorder [Unknown]
  - Pneumonia [Unknown]
  - Pyrexia [Recovering/Resolving]
  - Fatigue [Unknown]
  - Pneumonia [Recovered/Resolved]
  - Diarrhoea [Recovering/Resolving]
  - Fatigue [Unknown]

NARRATIVE: CASE EVENT DATE: 2013
